FAERS Safety Report 7535965-2 (Version None)
Quarter: 2011Q2

REPORT INFORMATION
  Report Type: 
  Country: None (occurrence: None)
  Receive Date: 20110602
  Receipt Date: 20110517
  Transmission Date: 20111010
  Serious: Yes (Other)
  Sender: FDA-Public Use
  Company Number: 2009S1003999

PATIENT
  Age: 58 Year
  Sex: Female
  Weight: 293.4 kg

DRUGS (5)
  1. SIMVASTATIN [Concomitant]
  2. DILTIAZEM [Concomitant]
  3. TRICOR [Concomitant]
  4. BENICAR HCT [Concomitant]
  5. PHOSPHOSODA FLAVOR NOT SPECIFIED [Suspect]
     Indication: COLONOSCOPY
     Dosage: PO
     Route: 048
     Dates: start: 20080210

REACTIONS (6)
  - RENAL FAILURE ACUTE [None]
  - SEPSIS [None]
  - DEHYDRATION [None]
  - NAUSEA [None]
  - VIRAL INFECTION [None]
  - RENAL TUBULAR NECROSIS [None]
